FAERS Safety Report 6288390-9 (Version None)
Quarter: 2009Q3

REPORT INFORMATION
  Report Type: 
  Country: None (occurrence: None)
  Receive Date: 20090729
  Receipt Date: 20090721
  Transmission Date: 20100115
  Serious: Yes (Hospitalization, Congenital Anomaly)
  Sender: FDA-Public Use
  Company Number: A0679842A

PATIENT
  Sex: Male
  Weight: 2.9 kg

DRUGS (4)
  1. PAXIL [Suspect]
     Indication: ANXIETY
     Dosage: 20MG PER DAY
     Dates: start: 20020723, end: 20021001
  2. VITAMIN TAB [Concomitant]
  3. STEROID [Concomitant]
  4. CELESTONE [Concomitant]
     Dates: start: 20030519, end: 20030519

REACTIONS (5)
  - BICUSPID AORTIC VALVE [None]
  - CHYLOTHORAX [None]
  - DRUG EXPOSURE DURING PREGNANCY [None]
  - HYDROPS FOETALIS [None]
  - MULTIPLE CONGENITAL ABNORMALITIES [None]
